FAERS Safety Report 6998471-X (Version None)
Quarter: 2010Q3

REPORT INFORMATION
  Report Type: 
  Country: None (occurrence: None)
  Receive Date: 20100920
  Receipt Date: 20100906
  Transmission Date: 20110219
  Serious: Yes (Other)
  Sender: FDA-Public Use
  Company Number: AT-RANBAXY-2010RR-38139

PATIENT
  Age: 42 Year
  Sex: Male

DRUGS (3)
  1. AMOXICILLIN [Suspect]
     Indication: HELICOBACTER INFECTION
  2. CLARITHROMYCIN [Suspect]
     Indication: HELICOBACTER INFECTION
  3. PANTOPRAZOLE [Suspect]
     Indication: HELICOBACTER INFECTION

REACTIONS (4)
  - ACUTE PSYCHOSIS [None]
  - DELUSIONAL PERCEPTION [None]
  - DISORIENTATION [None]
  - PERSONALITY CHANGE [None]
